FAERS Safety Report 6566458-7 (Version None)
Quarter: 2010Q1

REPORT INFORMATION
  Report Type: 
  Country: None (occurrence: None)
  Receive Date: 20100202
  Receipt Date: 20100122
  Transmission Date: 20100710
  Serious: Yes (Other)
  Sender: FDA-Public Use
  Company Number: PHHY2010BR03833

PATIENT
  Sex: Male

DRUGS (1)
  1. GALVUS MET [Suspect]
     Dosage: 50/850 MG

REACTIONS (1)
  - BLOOD GLUCOSE INCREASED [None]
